FAERS Safety Report 5162717-3 (Version None)
Quarter: 2006Q4

REPORT INFORMATION
  Report Type: 
  Country: None (occurrence: None)
  Receive Date: 20061201
  Receipt Date: 20060502
  Transmission Date: 20070319
  Serious: No
  Sender: FDA-Public Use
  Company Number: US-GLAXOSMITHKLINE-A0604100A

PATIENT
  Age: 44 Year
  Sex: Female

DRUGS (2)
  1. AMOXICILLIN + CLAVULANATE POTASSIUM [Suspect]
     Indication: INFECTION PROPHYLAXIS
     Route: 048
  2. AMOXICILLIN + CLAVULANATE POTASSIUM [Suspect]
     Route: 048

REACTIONS (1)
  - DRUG INEFFECTIVE [None]
